FAERS Safety Report 24839384 (Version 1)
Quarter: 2025Q1

REPORT INFORMATION
  Report Type: Spontaneous
  Country: JP (occurrence: JP)
  Receive Date: 20250114
  Receipt Date: 20250114
  Transmission Date: 20250409
  Serious: No
  Sender: ALKEM
  Company Number: JP-ALKEM LABORATORIES LIMITED-JP-ALKEM-2024-24580

PATIENT

DRUGS (2)
  1. CAPECITABINE [Suspect]
     Active Substance: CAPECITABINE
     Indication: Colon cancer stage III
     Dosage: 2000 MILLIGRAM/SQ. METER, QD (IN TWO DIVIDED DOSES FOR 14 DAYS IN A 3-WEEK CYCLE, FOR A TOTAL OF EIG
     Route: 048
  2. OXALIPLATIN [Suspect]
     Active Substance: OXALIPLATIN
     Indication: Colon cancer stage III
     Route: 042

REACTIONS (1)
  - Peripheral sensory neuropathy [Unknown]
